FAERS Safety Report 4981590-7 (Version None)
Quarter: 2006Q2

REPORT INFORMATION
  Report Type: 
  Country: None (occurrence: None)
  Receive Date: 20060425
  Receipt Date: 20060216
  Transmission Date: 20061013
  Serious: Yes (Death, Hospitalization)
  Sender: FDA-Public Use
  Company Number: FR-BRISTOL-MYERS SQUIBB COMPANY-13286547

PATIENT
  Age: 65 Year
  Sex: Male

DRUGS (13)
  1. METHOTREXATE [Suspect]
     Route: 048
     Dates: start: 20000715, end: 20010101
  2. PRAVASTATIN [Suspect]
     Route: 048
  3. FUROSEMIDE [Suspect]
     Route: 048
  4. ENBREL [Suspect]
     Indication: RHEUMATOID ARTHRITIS
     Route: 058
     Dates: start: 20000316, end: 20000622
  5. LEFLUNOMIDE [Suspect]
     Route: 048
     Dates: start: 20010118, end: 20040101
  6. CHLORAMBUCIL [Suspect]
     Route: 048
  7. PREDNISONE [Suspect]
     Route: 048
  8. LOSARTAN POTASSIUM [Suspect]
     Route: 048
  9. BISOPROLOL [Suspect]
     Route: 048
  10. LYSINE ACETYLSALICYLATE [Suspect]
     Route: 048
  11. OMEPRAZOLE [Suspect]
     Route: 048
  12. REMICADE [Suspect]
     Route: 042
     Dates: start: 20000710
  13. MESALAZINE [Concomitant]
     Dates: start: 20040602

REACTIONS (1)
  - T-CELL LYMPHOMA STAGE IV [None]
